FAERS Safety Report 10178699 (Version 2)
Quarter: 2014Q2

REPORT INFORMATION
  Report Type: Spontaneous
  Country: BR (occurrence: BR)
  Receive Date: 20140519
  Receipt Date: 20140519
  Transmission Date: 20141212
  Serious: Yes (Other)
  Sender: FDA-Public Use
  Company Number: BR-SANOFI-AVENTIS-2013SA093158

PATIENT
  Sex: Female

DRUGS (6)
  1. DACTIL OB [Suspect]
     Indication: VAGINAL HAEMORRHAGE
     Route: 048
     Dates: start: 201308
  2. CLEXANE [Suspect]
     Indication: PROPHYLAXIS OF ABORTION
     Route: 058
     Dates: start: 201308
  3. FOLIC ACID [Concomitant]
     Indication: VITAMIN SUPPLEMENTATION
     Route: 048
     Dates: start: 201308
  4. FERROUS SULPHATE [Concomitant]
     Indication: VITAMIN SUPPLEMENTATION
     Route: 048
     Dates: start: 201308
  5. PROGESTAN [Concomitant]
     Indication: PROPHYLAXIS OF ABORTION
     Route: 048
     Dates: start: 201308
  6. CORTICOSTEROIDS [Concomitant]

REACTIONS (3)
  - Amniotic fluid volume decreased [Recovered/Resolved]
  - Premature delivery [Unknown]
  - Exposure during pregnancy [Unknown]
